FAERS Safety Report 7249040-8 (Version None)
Quarter: 2011Q1

REPORT INFORMATION
  Report Type: 
  Country: None (occurrence: None)
  Receive Date: 20110128
  Receipt Date: 20100513
  Transmission Date: 20110831
  Serious: Yes (Hospitalization, Other)
  Sender: FDA-Public Use
  Company Number: US-BAYER-201016595NA

PATIENT
  Sex: Female
  Weight: 95.455 kg

DRUGS (26)
  1. ADIPEX [Concomitant]
     Indication: WEIGHT DECREASED
     Route: 065
     Dates: end: 20080402
  2. AMBIEN [Concomitant]
     Indication: SLEEP DISORDER THERAPY
     Dosage: PHARMACY RECORDS: 25-SEP-2007, 05-MAR-2009.
     Route: 065
  3. YASMIN [Suspect]
     Indication: CONTRACEPTION
     Route: 048
     Dates: start: 20060802, end: 20090925
  4. UNCODEABLE ^UNCLASSIFIABLE^ [Concomitant]
     Indication: DEPRESSION
  5. OCELLA [Suspect]
     Route: 048
     Dates: start: 20060802, end: 20090925
  6. IMITREX [Concomitant]
     Indication: MIGRAINE
     Route: 065
     Dates: start: 20050101, end: 20070101
  7. PHENTERMINE [Concomitant]
     Dosage: PHARMACY RECORDS: 02-APR-2008, 14-MAY-2008
     Route: 065
  8. CORCIDIN HBP [Concomitant]
     Indication: BLOOD PRESSURE MANAGEMENT
     Route: 065
     Dates: start: 20040101, end: 20090101
  9. SULAR [Concomitant]
     Indication: HYPERTENSION
     Route: 065
     Dates: start: 20050101, end: 20090101
  10. AMOXICILLIN + CLAVULANATE POTASSIUM [Concomitant]
     Dosage: PHARMACY RECORDS: FILLED ON 25-APR-2008
     Route: 065
  11. ADVIL [Concomitant]
     Indication: PRODUCT USED FOR UNKNOWN INDICATION
  12. ASCORBIC ACID [Concomitant]
     Indication: PRODUCT USED FOR UNKNOWN INDICATION
  13. CALCITRATE [Concomitant]
     Indication: PRODUCT USED FOR UNKNOWN INDICATION
  14. YASMIN [Suspect]
     Indication: ACNE
  15. TYLENOL PM [Concomitant]
     Indication: SLEEP DISORDER THERAPY
     Route: 065
     Dates: start: 20040101
  16. NSAID'S [Concomitant]
     Route: 065
  17. MOTRIN [Concomitant]
     Indication: MUSCLE SPASMS
  18. MULTI-VITAMIN [Concomitant]
     Indication: PRODUCT USED FOR UNKNOWN INDICATION
  19. SLOW-FE [Concomitant]
     Indication: PRODUCT USED FOR UNKNOWN INDICATION
  20. YASMIN [Suspect]
     Indication: PREMENSTRUAL SYNDROME
  21. TYLENOL COLD [Concomitant]
     Indication: NASOPHARYNGITIS
     Route: 065
     Dates: start: 20040101, end: 20090101
  22. MOTRIN [Concomitant]
     Indication: HEADACHE
  23. LORAZEPAM [Concomitant]
     Dosage: PHARMACY RECORDS: FILLED ON SEP-2009
     Route: 065
  24. ONE A DAY [Concomitant]
     Indication: PRODUCT USED FOR UNKNOWN INDICATION
  25. ALEVE [Concomitant]
     Indication: PRODUCT USED FOR UNKNOWN INDICATION
     Route: 065
     Dates: start: 20050101
  26. ASPIRIN [Concomitant]
     Indication: PRODUCT USED FOR UNKNOWN INDICATION
     Route: 048
     Dates: start: 20091001

REACTIONS (8)
  - VISION BLURRED [None]
  - CEREBROVASCULAR ACCIDENT [None]
  - CEREBRAL THROMBOSIS [None]
  - DIZZINESS [None]
  - BLINDNESS TRANSIENT [None]
  - ASTHENIA [None]
  - SYNCOPE [None]
  - AURA [None]
